FAERS Safety Report 7200382-1 (Version None)
Quarter: 2010Q4

REPORT INFORMATION
  Report Type: 
  Country: None (occurrence: None)
  Receive Date: 20101228
  Receipt Date: 20101110
  Transmission Date: 20110411
  Serious: Yes (Hospitalization)
  Sender: FDA-Public Use
  Company Number: GB-AMGEN-GBRCT2010005035

PATIENT

DRUGS (1)
  1. ENBREL [Suspect]
     Dosage: UNK
     Dates: start: 20060412

REACTIONS (1)
  - ARTERIAL STENOSIS [None]
